FAERS Safety Report 7095136-3 (Version None)
Quarter: 2010Q4

REPORT INFORMATION
  Report Type: 
  Country: None (occurrence: None)
  Receive Date: 20101111
  Receipt Date: 20101101
  Transmission Date: 20110411
  Serious: No
  Sender: FDA-Public Use
  Company Number: 2009BI011534

PATIENT
  Sex: Female

DRUGS (1)
  1. TYSABRI [Suspect]
     Indication: MULTIPLE SCLEROSIS
     Route: 042
     Dates: start: 20090309

REACTIONS (11)
  - ABDOMINAL PAIN UPPER [None]
  - ARTHROPOD BITE [None]
  - FEELING COLD [None]
  - HEADACHE [None]
  - INCREASED UPPER AIRWAY SECRETION [None]
  - NASAL CYST [None]
  - NASAL DISCOMFORT [None]
  - OROPHARYNGEAL DISCOMFORT [None]
  - SPUTUM DISCOLOURED [None]
  - THROAT IRRITATION [None]
  - URTICARIA [None]
